FAERS Safety Report 12130544 (Version 2)
Quarter: 2016Q2

REPORT INFORMATION
  Report Type: Spontaneous
  Country: PL (occurrence: PL)
  Receive Date: 20160301
  Receipt Date: 20160425
  Transmission Date: 20160815
  Serious: Yes (Hospitalization, Other)
  Sender: FDA-Public Use
  Company Number: PL-TEVA-638051ISR

PATIENT
  Age: 40 Year
  Sex: Male

DRUGS (3)
  1. BLEOMYCIN [Suspect]
     Active Substance: BLEOMYCIN SULFATE
  2. ETOPOSIDE. [Suspect]
     Active Substance: ETOPOSIDE
  3. CISPLATIN. [Suspect]
     Active Substance: CISPLATIN

REACTIONS (2)
  - Scrotal abscess [Unknown]
  - Anaemia [Unknown]
